FAERS Safety Report 23065128 (Version 1)
Quarter: 2023Q4

REPORT INFORMATION
  Report Type: Spontaneous
  Country: US (occurrence: None)
  Receive Date: 20231013
  Receipt Date: 20231013
  Transmission Date: 20240110
  Serious: Yes (Hospitalization)
  Sender: FDA-Public Use
  Company Number: None

PATIENT
  Age: 73 Year
  Sex: Male
  Weight: 79.8 kg

DRUGS (2)
  1. SULFAMETHIZOLE\TRIMETHOPRIM [Suspect]
     Active Substance: SULFAMETHIZOLE\TRIMETHOPRIM
     Dosage: FREQUENCY : TWICE A DAY;?
     Route: 048
     Dates: start: 20221228, end: 20230112
  2. LEVOFLOXACIN [Suspect]
     Active Substance: LEVOFLOXACIN
     Dates: start: 20221228, end: 20230112

REACTIONS (8)
  - Confusional state [None]
  - Headache [None]
  - Tremor [None]
  - Somnolence [None]
  - Asthenia [None]
  - Acute kidney injury [None]
  - Pneumonia bacterial [None]
  - Vomiting [None]

NARRATIVE: CASE EVENT DATE: 20230112
